FAERS Safety Report 5133284-5 (Version None)
Quarter: 2006Q4

REPORT INFORMATION
  Report Type: 
  Country: None (occurrence: None)
  Receive Date: 20060831
  Receipt Date: 20060627
  Transmission Date: 20070319
  Serious: No
  Sender: FDA-Public Use
  Company Number: 2006-BP-07335BP

PATIENT
  Age: 63 Year
  Sex: Female

DRUGS (8)
  1. SPIRIVA [Suspect]
     Indication: PNEUMONIA
     Dosage: 18 MCG (18 MCG,QD),IH
     Dates: start: 20060626, end: 20060626
  2. BUMETANIDE [Concomitant]
  3. AVANDIA [Concomitant]
  4. LISINOPRIL [Concomitant]
  5. PRILOSEC [Concomitant]
  6. FOLIC ACID [Concomitant]
  7. TRAZODONE HCL [Concomitant]
  8. PROZAC [Concomitant]

REACTIONS (4)
  - ANXIETY [None]
  - IRRITABILITY [None]
  - PAIN IN EXTREMITY [None]
  - PSYCHOMOTOR HYPERACTIVITY [None]
